FAERS Safety Report 6764802-9 (Version None)
Quarter: 2010Q2

REPORT INFORMATION
  Report Type: 
  Country: None (occurrence: None)
  Receive Date: 20100610
  Receipt Date: 20100607
  Transmission Date: 20101027
  Serious: Yes (Death)
  Sender: FDA-Public Use
  Company Number: DE-CEPHALON-2010003089

PATIENT
  Sex: Male

DRUGS (1)
  1. EFFENTORA [Suspect]
     Route: 002

REACTIONS (1)
  - MALIGNANT NEOPLASM PROGRESSION [None]
